FAERS Safety Report 9450161 (Version 3)
Quarter: 2013Q3

REPORT INFORMATION
  Report Type: Report from Study
  Country: CA (occurrence: CA)
  Receive Date: 20130809
  Receipt Date: 20130919
  Transmission Date: 20140515
  Serious: Yes (Other)
  Sender: FDA-Public Use
  Company Number: CA-JNJFOC-20130802488

PATIENT
  Age: 17 Year
  Sex: Female
  Weight: 24.49 kg

DRUGS (4)
  1. REMICADE [Suspect]
     Indication: CROHN^S DISEASE
     Route: 042
     Dates: start: 20120911
  2. REMICADE [Suspect]
     Indication: CROHN^S DISEASE
     Dosage: 8TH INFUSION
     Route: 042
     Dates: start: 20130807, end: 20130807
  3. BENADRYL [Concomitant]
     Indication: PREMEDICATION
     Route: 042
     Dates: start: 20130807
  4. HYDROCORTISONE [Concomitant]
     Indication: PREMEDICATION
     Dosage: 250 (UNSPECIFIED UNITS)
     Route: 042

REACTIONS (1)
  - Infusion related reaction [Recovered/Resolved]
